FAERS Safety Report 7166322-9 (Version None)
Quarter: 2010Q4

REPORT INFORMATION
  Report Type: 
  Country: None (occurrence: None)
  Receive Date: 20101216
  Receipt Date: 20101208
  Transmission Date: 20110411
  Serious: No
  Sender: FDA-Public Use
  Company Number: US-ABBOTT-10P-163-0667950-00

PATIENT
  Weight: 111.23 kg

DRUGS (1)
  1. TRILIPIX [Suspect]
     Indication: PRODUCT USED FOR UNKNOWN INDICATION
     Dosage: 135 MG DAILY
     Dates: start: 20070101, end: 20080701

REACTIONS (1)
  - BLOOD CREATININE INCREASED [None]
